FAERS Safety Report 6148766-7 (Version None)
Quarter: 2009Q2

REPORT INFORMATION
  Report Type: 
  Country: None (occurrence: None)
  Receive Date: 20090406
  Receipt Date: 20090319
  Transmission Date: 20091009
  Serious: Yes (Life-Threatening, Hospitalization)
  Sender: FDA-Public Use
  Company Number: 000599

PATIENT
  Age: 60 Year
  Sex: Female
  Weight: 54 kg

DRUGS (5)
  1. PROSTAGLANDIN E1 (PROSTAGLANDIN E1) [Suspect]
     Indication: HYPOTENSIVE ANAESTHESIA PROCEDURE
     Dosage: (0.03 UG/KG/MIN INTRAVENOUS (NOT OTHERWISE SPECIFIED)
     Route: 042
  2. PROPOFOL [Suspect]
     Indication: GENERAL ANAESTHESIA
     Dosage: (INTRAVENOUS (NOT OTHERWISE SPECIFIED)), (4 MG/KG/H INTRAVENOUS (NOT OTHERWISE SPECIFIED)
     Route: 042
  3. PROPRANOLOL [Suspect]
     Indication: HYPOTENSIVE ANAESTHESIA PROCEDURE
     Dosage: (INTRAVENOUS (NOT OTHERWISE SPECIFIED)
     Route: 042
  4. FENTANYL [Concomitant]
  5. VECURONIUM BROMIDE [Concomitant]

REACTIONS (13)
  - ARTERIOSPASM CORONARY [None]
  - ATRIOVENTRICULAR BLOCK [None]
  - BRADYCARDIA [None]
  - CARDIAC ARREST [None]
  - ELECTROCARDIOGRAM ST SEGMENT DEPRESSION [None]
  - ELECTROCARDIOGRAM ST SEGMENT ELEVATION [None]
  - ELECTROCARDIOGRAM T WAVE INVERSION [None]
  - HYPOTENSION [None]
  - NO THERAPEUTIC RESPONSE [None]
  - PROCEDURAL COMPLICATION [None]
  - VENTRICULAR ARRHYTHMIA [None]
  - VENTRICULAR EXTRASYSTOLES [None]
  - VENTRICULAR TACHYCARDIA [None]
